FAERS Safety Report 12499360 (Version 2)
Quarter: 2016Q3

REPORT INFORMATION
  Report Type: Spontaneous
  Country: IE (occurrence: IE)
  Receive Date: 20160627
  Receipt Date: 20160713
  Transmission Date: 20161109
  Serious: Yes (Disabling)
  Sender: FDA-Public Use
  Company Number: IE-ACTAVIS-2016-11733

PATIENT
  Age: 62 Year
  Sex: Female

DRUGS (1)
  1. TRAMADOL. [Suspect]
     Active Substance: TRAMADOL
     Indication: ARTHRITIS
     Dosage: UNK
     Route: 065

REACTIONS (5)
  - Constipation [Recovering/Resolving]
  - Abdominal distension [Not Recovered/Not Resolved]
  - Abasia [Recovering/Resolving]
  - Back pain [Not Recovered/Not Resolved]
  - Anal inflammation [Not Recovered/Not Resolved]
